FAERS Safety Report 7275726-5 (Version None)
Quarter: 2011Q1

REPORT INFORMATION
  Report Type: 
  Country: None (occurrence: None)
  Receive Date: 20110131
  Receipt Date: 20110114
  Transmission Date: 20110831
  Serious: Yes (Hospitalization)
  Sender: FDA-Public Use
  Company Number: 023633

PATIENT
  Age: 40 Year
  Sex: Female

DRUGS (3)
  1. URBANYL [Concomitant]
  2. LEVETIRACETAM [Suspect]
     Indication: EPILEPSY
     Dosage: 10000 MG/DAY AT THE THERAPY INITIATION, GRADUALLY INCREASED
     Dates: start: 20060317, end: 20060331
  3. LAMICTAL [Concomitant]

REACTIONS (2)
  - DYSTHYMIC DISORDER [None]
  - AGGRESSION [None]
